FAERS Safety Report 8807088 (Version 1)
Quarter: 2012Q4

REPORT INFORMATION
  Report Type: 
  Country: US (occurrence: US)
  Receive Date: 20120925
  Receipt Date: 20120925
  Transmission Date: 20130627
  Serious: Yes (Disabling, Other)
  Sender: FDA-Public Use
  Company Number: US-ROCHE-1060514

PATIENT
  Age: 85 Year
  Sex: Female

DRUGS (6)
  1. AVASTIN [Suspect]
     Indication: MACULAR DEGENERATION
     Route: 050
     Dates: start: 20111025
  2. WARFARIN [Concomitant]
     Indication: ANTICOAGULANT THERAPY
  3. METOPROLOL [Concomitant]
  4. POTASSIUM [Concomitant]
  5. ASA [Concomitant]
  6. LOSARTAN [Concomitant]

REACTIONS (10)
  - Hypogeusia [Not Recovered/Not Resolved]
  - Hyposmia [Not Recovered/Not Resolved]
  - Vision blurred [Unknown]
  - Extrasystoles [Unknown]
  - Foreign body sensation in eyes [Unknown]
  - Ill-defined disorder [Unknown]
  - Cough [Unknown]
  - Diarrhoea [Unknown]
  - Blindness [Unknown]
  - Epistaxis [Unknown]
